FAERS Safety Report 18510088 (Version 1)
Quarter: 2020Q4

REPORT INFORMATION
  Report Type: Spontaneous
  Country: CA (occurrence: CA)
  Receive Date: 20201117
  Receipt Date: 20201117
  Transmission Date: 20210114
  Serious: Yes (Death, Hospitalization, Other)
  Sender: FDA-Public Use
  Company Number: CA-GLAXOSMITHKLINE-CA2020GSK225936

PATIENT
  Sex: Female

DRUGS (1)
  1. AVANDIA [Suspect]
     Active Substance: ROSIGLITAZONE MALEATE
     Indication: DIABETES MELLITUS
     Dosage: 8 MG, QD
     Route: 048
     Dates: start: 20031029, end: 20060623

REACTIONS (9)
  - Myocardial ischaemia [Unknown]
  - Angina unstable [Unknown]
  - Catheter placement [Unknown]
  - Death [Fatal]
  - Myocardial infarction [Unknown]
  - Arteriosclerosis [Unknown]
  - Coronary arterial stent insertion [Unknown]
  - Cardiac disorder [Unknown]
  - Coronary artery disease [Unknown]
